FAERS Safety Report 4550865-8 (Version None)
Quarter: 2004Q4

REPORT INFORMATION
  Report Type: 
  Country: None (occurrence: None)
  Receive Date: 20041217
  Receipt Date: 20040901
  Transmission Date: 20050328
  Serious: No
  Sender: FDA-Public Use
  Company Number: 2004-BP-07578BP(0)

PATIENT
  Age: 57 Year
  Sex: Female

DRUGS (2)
  1. SPIRIVA [Suspect]
     Indication: CHRONIC OBSTRUCTIVE AIRWAYS DISEASE
     Dosage: 18 MCG (18 MCG, OD), IH
     Route: 055
     Dates: start: 20040831, end: 20040831
  2. TYLENOL [Concomitant]

REACTIONS (4)
  - DRY SKIN [None]
  - DRY THROAT [None]
  - LARYNGITIS [None]
  - UPPER RESPIRATORY TRACT INFECTION [None]
